FAERS Safety Report 7436145-1 (Version None)
Quarter: 2011Q2

REPORT INFORMATION
  Report Type: 
  Country: None (occurrence: None)
  Receive Date: 20110425
  Receipt Date: 20110411
  Transmission Date: 20111010
  Serious: Yes (Other)
  Sender: FDA-Public Use
  Company Number: US-BAYER-2011-032409

PATIENT
  Sex: Female
  Weight: 49.887 kg

DRUGS (3)
  1. FAMOTIDINE [Concomitant]
     Dosage: UNK
     Route: 048
  2. AMLODIPINE BESYLATE [Concomitant]
     Dosage: UNK
     Route: 048
  3. ASPIRIN [Suspect]
     Indication: ISCHAEMIC HEART DISEASE PROPHYLAXIS
     Dosage: 325 MG, QD, BOTTLE COUNT 100S
     Route: 048

REACTIONS (1)
  - EYE HAEMORRHAGE [None]
